FAERS Safety Report 7848835 (Version 3)
Quarter: 2013Q2

REPORT INFORMATION
  Report Type: Spontaneous
  Country: US (occurrence: US)
  Receive Date: 20110309
  Receipt Date: 20130627
  Transmission Date: 20140414
  Serious: Yes (Other)
  Sender: FDA-Public Use
  Company Number: US-ASTRAZENECA-2011SE11481

PATIENT
  Age: 43 Year
  Sex: Male
  Weight: 79.4 kg

DRUGS (8)
  1. ATACAND [Suspect]
     Indication: CARDIOMYOPATHY
     Route: 048
     Dates: start: 2010
  2. ATACAND [Suspect]
     Indication: CARDIAC FAILURE
     Route: 048
     Dates: start: 2010
  3. TOPROL XL [Suspect]
     Indication: CARDIOMYOPATHY
     Route: 048
  4. TOPROL XL [Suspect]
     Indication: CARDIAC FAILURE
     Route: 048
  5. ENALAPRIL [Concomitant]
     Indication: CARDIOMYOPATHY
     Route: 048
  6. ENALAPRIL [Concomitant]
     Indication: CARDIAC FAILURE
     Route: 048
  7. ASPIRIN [Concomitant]
     Indication: CARDIOMYOPATHY
     Route: 048
  8. ASPIRIN [Concomitant]
     Indication: CARDIAC FAILURE
     Route: 048

REACTIONS (6)
  - Cardiac disorder [Unknown]
  - Cardiac disorder [Unknown]
  - Asthenia [Unknown]
  - Visual impairment [Unknown]
  - Malaise [Unknown]
  - Drug dose omission [Unknown]
